FAERS Safety Report 17052058 (Version 2)
Quarter: 2020Q2

REPORT INFORMATION
  Report Type: Report from Study
  Country: US (occurrence: US)
  Receive Date: 20191120
  Receipt Date: 20200619
  Transmission Date: 20200713
  Serious: Yes (Other)
  Sender: FDA-Public Use
  Company Number: US-ROCHE-2442551

PATIENT
  Sex: Female

DRUGS (2)
  1. OCREVUS [Suspect]
     Active Substance: OCRELIZUMAB
     Dosage: ON 20/SEP/2018, 04/APR/2019 AND 09/OCT/2019, SHE RECEIVED DOSE OF OCRELIZUMAB INFUSION.
     Route: 065
     Dates: start: 20180319
  2. OCREVUS [Suspect]
     Active Substance: OCRELIZUMAB
     Indication: PRIMARY PROGRESSIVE MULTIPLE SCLEROSIS
     Route: 042
     Dates: start: 20170807

REACTIONS (2)
  - Off label use [Unknown]
  - Cystitis [Not Recovered/Not Resolved]
